FAERS Safety Report 15346839 (Version 1)
Quarter: 2018Q3

REPORT INFORMATION
  Report Type: Spontaneous
  Country: GB (occurrence: GB)
  Receive Date: 20180904
  Receipt Date: 20180904
  Transmission Date: 20181010
  Serious: Yes (Other)
  Sender: FDA-Public Use
  Company Number: PHHY2018GB087983

PATIENT
  Age: 62 Year
  Sex: Female

DRUGS (3)
  1. PREDNISOLONE. [Concomitant]
     Active Substance: PREDNISOLONE
     Indication: BIRDSHOT CHORIORETINOPATHY
     Route: 048
  2. TACROLIMUS. [Suspect]
     Active Substance: TACROLIMUS
     Indication: BIRDSHOT CHORIORETINOPATHY
     Dosage: 2 MG, QD (FURTHER INCREASED TO ACHIEVE A SERUM TROUGH LEVEL OF 5?10 NG/ML)
     Route: 065
  3. MYCOPHENOLATE MOFETIL. [Concomitant]
     Active Substance: MYCOPHENOLATE MOFETIL
     Indication: BIRDSHOT CHORIORETINOPATHY
     Route: 065

REACTIONS (2)
  - Insomnia [Unknown]
  - Renal impairment [Unknown]
